FAERS Safety Report 19360348 (Version 3)
Quarter: 2021Q4

REPORT INFORMATION
  Report Type: Spontaneous
  Country: US (occurrence: US)
  Receive Date: 20210601
  Receipt Date: 20211012
  Transmission Date: 20220303
  Serious: Yes (Other)
  Sender: FDA-Public Use
  Company Number: US-PFIZER INC-2020464054

PATIENT
  Age: 69 Year
  Sex: Female
  Weight: 84.81 kg

DRUGS (1)
  1. XELJANZ XR [Suspect]
     Active Substance: TOFACITINIB CITRATE
     Dosage: 1 DF, DAILY (TAKE 1 TABLET DAILY)

REACTIONS (2)
  - Atrial fibrillation [Unknown]
  - Mobility decreased [Unknown]
